FAERS Safety Report 18711636 (Version 1)
Quarter: 2021Q1

REPORT INFORMATION
  Report Type: Spontaneous
  Country: RO (occurrence: RO)
  Receive Date: 20210107
  Receipt Date: 20210107
  Transmission Date: 20210419
  Serious: Yes (Other)
  Sender: FDA-Public Use
  Company Number: RO-UCBSA-2020049427

PATIENT
  Age: 73 Year
  Sex: Female

DRUGS (1)
  1. XYZAL [Suspect]
     Active Substance: LEVOCETIRIZINE DIHYDROCHLORIDE
     Indication: FOOD ALLERGY
     Dosage: 5 MILLIGRAM, DAILY IN THE EVENING

REACTIONS (4)
  - Drug ineffective for unapproved indication [Unknown]
  - Paralysis [Unknown]
  - Hypersensitivity [Unknown]
  - Product use in unapproved indication [Unknown]
